FAERS Safety Report 10220095 (Version 1)
Quarter: 2014Q1

REPORT INFORMATION
  Report Type: Spontaneous
  Country: US (occurrence: None)
  Receive Date: 20140306
  Receipt Date: 20140306
  Transmission Date: 20141002
  Serious: Yes (Hospitalization)
  Sender: FDA-Public Use
  Company Number: 163-21880-13054447

PATIENT
  Age: 63 Year
  Sex: Female
  Weight: 113.4 kg

DRUGS (10)
  1. REVLIMID (LENALIDOMIDE) (15 MILLIGRAM, CAPSULES) [Suspect]
     Indication: PLASMA CELL MYELOMA
     Dosage: 15 MG, 21 IN 21 D, PO
     Route: 048
     Dates: start: 20130325
  2. ANTICOAGULANT (OTHER ANTITHROMBOTIC AGENTS) [Concomitant]
  3. GABAPENTIN (GABAPENTIN) [Concomitant]
  4. RANITIDINE  (RANITIDINE) [Concomitant]
  5. ARTHRITIS MEDICATION (OTHER THERAPEUTIC PRODUCTS) [Concomitant]
  6. DEXAMETHSONE (DEXAMETHASONE) [Concomitant]
  7. ZOMETA (ZOLEDRONIC ACID) [Concomitant]
  8. JANUMET (JANUMET) [Concomitant]
  9. ZOCOR (SIMVASTATIN) [Concomitant]
  10. ATENOLOL (ATENOLOL) [Concomitant]

REACTIONS (2)
  - Deep vein thrombosis [None]
  - Neuropathy peripheral [None]
